FAERS Safety Report 25421492 (Version 1)
Quarter: 2025Q2

REPORT INFORMATION
  Report Type: Spontaneous
  Country: US (occurrence: US)
  Receive Date: 20250611
  Receipt Date: 20250611
  Transmission Date: 20250717
  Serious: No
  Sender: NOVARTIS
  Company Number: US-002147023-NVSC2025US089874

PATIENT
  Sex: Female

DRUGS (1)
  1. FABHALTA [Suspect]
     Active Substance: IPTACOPAN HYDROCHLORIDE
     Indication: Product used for unknown indication
     Dosage: 200 MG, BID (EVERY 12 HOURS)
     Route: 065

REACTIONS (4)
  - Somnolence [Unknown]
  - Night sweats [Unknown]
  - Cold sweat [Unknown]
  - Vision blurred [Unknown]
